FAERS Safety Report 19644298 (Version 15)
Quarter: 2022Q2

REPORT INFORMATION
  Report Type: Report from Study
  Country: BR (occurrence: BR)
  Receive Date: 20210801
  Receipt Date: 20220519
  Transmission Date: 20220720
  Serious: Yes (Life-Threatening, Hospitalization, Other)
  Sender: FDA-Public Use
  Company Number: NVSC2021BR172464

PATIENT
  Age: 68 Year
  Sex: Female

DRUGS (16)
  1. KISQALI [Suspect]
     Active Substance: RIBOCICLIB
     Indication: Breast cancer
     Dosage: UNK
     Route: 065
     Dates: start: 20200905
  2. KISQALI [Suspect]
     Active Substance: RIBOCICLIB
     Dosage: UNK
     Route: 065
     Dates: start: 20200925
  3. KISQALI [Suspect]
     Active Substance: RIBOCICLIB
     Dosage: UNK, 21D AND 7 DAYS PAUSE
     Route: 065
     Dates: start: 20200925
  4. KISQALI [Suspect]
     Active Substance: RIBOCICLIB
     Dosage: 3 DOSAGE FORM
     Route: 065
     Dates: start: 20200925
  5. KISQALI [Suspect]
     Active Substance: RIBOCICLIB
     Dosage: 3 DOSAGE FORM
     Route: 065
     Dates: start: 20200925
  6. KISQALI [Suspect]
     Active Substance: RIBOCICLIB
     Dosage: UNK
     Route: 065
     Dates: start: 20200925
  7. KISQALI [Suspect]
     Active Substance: RIBOCICLIB
     Dosage: UNK
     Route: 065
     Dates: start: 20200925
  8. KISQALI [Suspect]
     Active Substance: RIBOCICLIB
     Dosage: UNK
     Route: 065
     Dates: start: 20210925
  9. KISQALI [Suspect]
     Active Substance: RIBOCICLIB
     Dosage: 3 DOSAGE FORM, QD
     Route: 065
     Dates: start: 20210925
  10. KISQALI [Suspect]
     Active Substance: RIBOCICLIB
     Dosage: 3 DOSAGE FORM
     Route: 065
  11. KISQALI [Suspect]
     Active Substance: RIBOCICLIB
     Dosage: UNK
     Route: 065
     Dates: start: 20200925
  12. ZOMETA [Suspect]
     Active Substance: ZOLEDRONIC ACID
     Indication: Product used for unknown indication
     Dosage: UNK (STARTED 6 YEARS AGO)
     Route: 065
  13. ALPRAZOLAM [Concomitant]
     Active Substance: ALPRAZOLAM
     Indication: Sleep disorder
     Dosage: UNK (USED MORE THAN HALF OF THIS DRUG)
     Route: 065
  14. ALPRAZOLAM [Concomitant]
     Active Substance: ALPRAZOLAM
     Indication: Antidepressant therapy
  15. FASLODEX [Concomitant]
     Active Substance: FULVESTRANT
     Indication: Product used for unknown indication
     Dosage: UNK (STARTED BEFORE KISQALI) (EACH 21 DAYS)
     Route: 065
  16. CELEBRA [Concomitant]
     Active Substance: CELECOXIB
     Indication: Inflammation
     Dosage: UNK, QD
     Route: 065
     Dates: end: 20210610

REACTIONS (69)
  - Metastasis [Unknown]
  - Vomiting [Unknown]
  - Nausea [Unknown]
  - Anaemia [Unknown]
  - Decreased appetite [Unknown]
  - Red blood cell count decreased [Not Recovered/Not Resolved]
  - Hepatic cancer [Unknown]
  - Second primary malignancy [Recovering/Resolving]
  - Cerebrovascular accident [Unknown]
  - Syncope [Unknown]
  - Leukaemia recurrent [Unknown]
  - Metastases to bone [Unknown]
  - Metastases to pelvis [Unknown]
  - Decreased immune responsiveness [Not Recovered/Not Resolved]
  - Metastases to liver [Unknown]
  - Neoplasm malignant [Unknown]
  - Eye disorder [Unknown]
  - Dark circles under eyes [Recovering/Resolving]
  - Hair growth abnormal [Unknown]
  - Heart rate increased [Recovering/Resolving]
  - Heart sounds abnormal [Recovering/Resolving]
  - White blood cell count decreased [Recovering/Resolving]
  - Alopecia [Not Recovered/Not Resolved]
  - Blood pressure abnormal [Unknown]
  - Skin discolouration [Unknown]
  - Liver disorder [Recovering/Resolving]
  - Skin burning sensation [Unknown]
  - Musculoskeletal pain [Unknown]
  - Labyrinthitis [Recovered/Resolved]
  - Musculoskeletal chest pain [Unknown]
  - Bone pain [Unknown]
  - Tumour marker increased [Unknown]
  - Vulvovaginal burning sensation [Unknown]
  - Burning sensation [Unknown]
  - Dry eye [Unknown]
  - Vision blurred [Unknown]
  - Intracranial mass [Unknown]
  - Vein disorder [Unknown]
  - Tinnitus [Recovered/Resolved]
  - Fall [Unknown]
  - Head injury [Unknown]
  - Muscular weakness [Unknown]
  - Eye pain [Unknown]
  - Pain in extremity [Recovering/Resolving]
  - Fatigue [Unknown]
  - Accident [Unknown]
  - Pain [Recovering/Resolving]
  - Dizziness [Recovered/Resolved]
  - Dizziness [Unknown]
  - Headache [Unknown]
  - Abdominal discomfort [Unknown]
  - Eating disorder [Unknown]
  - Pelvic pain [Unknown]
  - Discouragement [Unknown]
  - Hypoaesthesia [Recovering/Resolving]
  - Influenza [Unknown]
  - Asthenia [Unknown]
  - Carbohydrate antigen 15-3 increased [Unknown]
  - Illness [Unknown]
  - Visual impairment [Recovering/Resolving]
  - Injury [Unknown]
  - Inappropriate schedule of product administration [Unknown]
  - Weight decreased [Unknown]
  - Gait disturbance [Recovering/Resolving]
  - Hepatic mass [Unknown]
  - Nodule [Unknown]
  - COVID-19 [Recovered/Resolved]
  - Oropharyngeal pain [Recovered/Resolved]
  - Nail disorder [Unknown]

NARRATIVE: CASE EVENT DATE: 20200801
